FAERS Safety Report 10170363 (Version 2)
Quarter: 2014Q2

REPORT INFORMATION
  Report Type: Report from Study
  Country: US (occurrence: US)
  Receive Date: 20140513
  Receipt Date: 20140513
  Transmission Date: 20141212
  Serious: No
  Sender: FDA-Public Use
  Company Number: PHEH2013US002485

PATIENT
  Age: 1 Year
  Sex: Male
  Weight: 11.74 kg

DRUGS (4)
  1. ILARIS [Suspect]
     Indication: FAMILIAL COLD AUTOINFLAMMATORY SYNDROME
     Dosage: 33 MG, UNK
  2. ILARIS [Suspect]
     Dosage: 40 MG, UNK
  3. ILARIS [Suspect]
     Dosage: 2 MG/KG, UNK
     Route: 058
  4. FLONASE [Concomitant]
     Indication: HYPERSENSITIVITY
     Dosage: 1 DF, UNK
     Route: 055

REACTIONS (3)
  - Conjunctivitis [Recovered/Resolved]
  - Ocular hyperaemia [Recovered/Resolved]
  - Drug administered to patient of inappropriate age [Unknown]
